FAERS Safety Report 21128867 (Version 16)
Quarter: 2022Q3

REPORT INFORMATION
  Report Type: Report from Study
  Country: CN (occurrence: None)
  Receive Date: 20220725
  Receipt Date: 20220922
  Transmission Date: 20221026
  Serious: Yes (Death, Hospitalization)
  Sender: FDA-Public Use
  Company Number: CN-ROCHE-3144171

PATIENT
  Age: 70 Year
  Sex: Male
  Weight: 54 kg

DRUGS (128)
  1. ATEZOLIZUMAB [Suspect]
     Active Substance: ATEZOLIZUMAB
     Indication: Oesophageal squamous cell carcinoma
     Dosage: ON 08/JUN/2022, DOSE LAST STUDY DRUG ADMIN PRIOR AE/SAE
     Route: 041
     Dates: start: 20220520
  2. TIRAGOLUMAB [Suspect]
     Active Substance: TIRAGOLUMAB
     Indication: Oesophageal squamous cell carcinoma
     Dosage: ON 08/JUN/2022, DOSE LAST STUDY DRUG ADMIN PRIOR AE/ SAE
     Route: 042
     Dates: start: 20220520
  3. ALBUMIN HUMAN [Concomitant]
     Active Substance: ALBUMIN HUMAN
     Route: 042
     Dates: start: 20220719, end: 20220719
  4. ALBUMIN HUMAN [Concomitant]
     Active Substance: ALBUMIN HUMAN
     Route: 042
     Dates: start: 20220719, end: 20220719
  5. ALBUMIN HUMAN [Concomitant]
     Active Substance: ALBUMIN HUMAN
     Route: 042
     Dates: start: 20220720, end: 20220720
  6. ALBUMIN HUMAN [Concomitant]
     Active Substance: ALBUMIN HUMAN
     Route: 042
     Dates: start: 20220725, end: 20220725
  7. ENTECAVIR [Concomitant]
     Active Substance: ENTECAVIR
     Indication: Hepatitis B
     Dates: start: 20220323, end: 20220708
  8. ENTECAVIR [Concomitant]
     Active Substance: ENTECAVIR
     Route: 048
     Dates: start: 20220713, end: 20220720
  9. FINASTERIDE [Concomitant]
     Active Substance: FINASTERIDE
     Indication: Benign prostatic hyperplasia
     Dates: start: 20220419, end: 20220708
  10. TAMSULOSIN HYDROCHLORIDE [Concomitant]
     Active Substance: TAMSULOSIN HYDROCHLORIDE
     Indication: Benign prostatic hyperplasia
     Dosage: YES
     Dates: start: 20220419, end: 20220708
  11. AMLODIPINE BESYLATE [Concomitant]
     Active Substance: AMLODIPINE BESYLATE
     Indication: Essential hypertension
     Dosage: YES
     Dates: start: 2018, end: 20220708
  12. AMBROXOL HYDROCHLORIDE [Concomitant]
     Active Substance: AMBROXOL HYDROCHLORIDE
     Indication: Radiation pneumonitis
     Dosage: YES
     Route: 048
     Dates: start: 20220608, end: 20220715
  13. ACETAMINOPHEN\DIHYDROCODEINE BITARTRATE [Concomitant]
     Active Substance: ACETAMINOPHEN\DIHYDROCODEINE BITARTRATE
     Indication: Radiation pneumonitis
     Route: 048
     Dates: start: 20220608, end: 20220610
  14. MOXIFLOXACIN HYDROCHLORIDE [Concomitant]
     Active Substance: MOXIFLOXACIN HYDROCHLORIDE
     Indication: Radiation pneumonitis
     Route: 048
     Dates: start: 20220608, end: 20220615
  15. OMEPRAZOLE SODIUM [Concomitant]
     Active Substance: OMEPRAZOLE SODIUM
     Indication: Chronic gastritis
     Route: 042
     Dates: start: 20220708, end: 20220718
  16. OMEPRAZOLE SODIUM [Concomitant]
     Active Substance: OMEPRAZOLE SODIUM
     Route: 042
     Dates: start: 20220708, end: 20220718
  17. OMEPRAZOLE SODIUM [Concomitant]
     Active Substance: OMEPRAZOLE SODIUM
     Dates: start: 20220718, end: 20220725
  18. OMEPRAZOLE SODIUM [Concomitant]
     Active Substance: OMEPRAZOLE SODIUM
     Dates: start: 20220608, end: 20220615
  19. OMEPRAZOLE SODIUM [Concomitant]
     Active Substance: OMEPRAZOLE SODIUM
     Dates: start: 20220718, end: 20220718
  20. DYPHYLLINE [Concomitant]
     Active Substance: DYPHYLLINE
     Route: 042
     Dates: start: 20220708, end: 20220716
  21. ACETYLCYSTEINE [Concomitant]
     Active Substance: ACETYLCYSTEINE
     Indication: Asthma
     Route: 055
     Dates: start: 20220708, end: 20220718
  22. ACETYLCYSTEINE [Concomitant]
     Active Substance: ACETYLCYSTEINE
     Route: 055
     Dates: start: 20220718, end: 20220725
  23. FUROSEMIDE [Concomitant]
     Active Substance: FUROSEMIDE
     Indication: Polyuria
     Route: 048
     Dates: start: 20220711, end: 20220713
  24. FUROSEMIDE [Concomitant]
     Active Substance: FUROSEMIDE
     Dosage: GIVEN FOR PROPHYLAXIS YES
     Route: 048
     Dates: start: 20220711, end: 20220711
  25. FUROSEMIDE [Concomitant]
     Active Substance: FUROSEMIDE
     Route: 042
     Dates: start: 20220719, end: 20220719
  26. FUROSEMIDE [Concomitant]
     Active Substance: FUROSEMIDE
     Route: 042
     Dates: start: 20220720, end: 20220720
  27. FUROSEMIDE [Concomitant]
     Active Substance: FUROSEMIDE
     Route: 042
     Dates: start: 20220721, end: 20220721
  28. FUROSEMIDE [Concomitant]
     Active Substance: FUROSEMIDE
     Route: 042
     Dates: start: 20220722, end: 20220722
  29. FUROSEMIDE [Concomitant]
     Active Substance: FUROSEMIDE
     Route: 042
     Dates: start: 20220723, end: 20220723
  30. FUROSEMIDE [Concomitant]
     Active Substance: FUROSEMIDE
     Route: 042
     Dates: start: 20220722, end: 20220722
  31. FUROSEMIDE [Concomitant]
     Active Substance: FUROSEMIDE
     Route: 042
     Dates: start: 20220723, end: 20220723
  32. FUROSEMIDE [Concomitant]
     Active Substance: FUROSEMIDE
     Route: 042
     Dates: start: 20220724, end: 20220724
  33. FUROSEMIDE [Concomitant]
     Active Substance: FUROSEMIDE
     Route: 042
     Dates: start: 20220725, end: 20220725
  34. FUROSEMIDE [Concomitant]
     Active Substance: FUROSEMIDE
     Route: 042
     Dates: start: 20220725, end: 20220725
  35. SPIRONOLACTONE [Concomitant]
     Active Substance: SPIRONOLACTONE
     Indication: Polyuria
     Route: 048
     Dates: start: 20220711, end: 20220713
  36. SULFAMETHOXAZOLE [Concomitant]
     Active Substance: SULFAMETHOXAZOLE
     Route: 048
     Dates: start: 20220712, end: 20220716
  37. SULFAMETHOXAZOLE [Concomitant]
     Active Substance: SULFAMETHOXAZOLE
     Route: 048
     Dates: start: 20220718, end: 20220725
  38. SULFAMETHOXAZOLE [Concomitant]
     Active Substance: SULFAMETHOXAZOLE
     Route: 048
     Dates: start: 20220712, end: 20220719
  39. SULFAMETHOXAZOLE [Concomitant]
     Active Substance: SULFAMETHOXAZOLE
     Route: 042
     Dates: start: 20220724, end: 20220724
  40. PULMICORT RESPULES [Concomitant]
     Active Substance: BUDESONIDE
     Indication: Asthma
     Route: 055
     Dates: start: 20220716, end: 20220718
  41. COMBIVENT [Concomitant]
     Active Substance: ALBUTEROL SULFATE\IPRATROPIUM BROMIDE
     Route: 055
     Dates: start: 20220718, end: 20220725
  42. FOSCARNET [Concomitant]
     Active Substance: FOSCARNET
     Route: 042
     Dates: start: 20220718, end: 20220723
  43. POTASSIUM CHLORIDE [Concomitant]
     Active Substance: POTASSIUM CHLORIDE
     Route: 042
     Dates: start: 20220718, end: 20220725
  44. POTASSIUM CHLORIDE [Concomitant]
     Active Substance: POTASSIUM CHLORIDE
     Route: 042
     Dates: start: 20220720, end: 20220720
  45. POTASSIUM CHLORIDE [Concomitant]
     Active Substance: POTASSIUM CHLORIDE
     Route: 042
     Dates: start: 20220719, end: 20220719
  46. POTASSIUM CHLORIDE [Concomitant]
     Active Substance: POTASSIUM CHLORIDE
     Route: 042
     Dates: start: 20220721, end: 20220721
  47. POTASSIUM CHLORIDE [Concomitant]
     Active Substance: POTASSIUM CHLORIDE
     Route: 042
     Dates: start: 20220723, end: 20220723
  48. DOXOFYLLINE [Concomitant]
     Active Substance: DOXOFYLLINE
     Route: 042
     Dates: start: 20220718, end: 20220720
  49. NADROPARIN CALCIUM [Concomitant]
     Active Substance: NADROPARIN CALCIUM
     Route: 058
     Dates: start: 20220718, end: 20220725
  50. LACTULOSE [Concomitant]
     Active Substance: LACTULOSE
     Dates: start: 20220719, end: 20220720
  51. LACTULOSE [Concomitant]
     Active Substance: LACTULOSE
     Route: 045
     Dates: start: 20220720, end: 20220725
  52. LACTULOSE [Concomitant]
     Active Substance: LACTULOSE
     Route: 048
     Dates: start: 20220719, end: 20220719
  53. LACTULOSE [Concomitant]
     Active Substance: LACTULOSE
     Route: 042
     Dates: start: 20220720, end: 20220720
  54. TRIMEBUTINE MALEATE [Concomitant]
     Active Substance: TRIMEBUTINE MALEATE
     Route: 045
     Dates: start: 20220719, end: 20220725
  55. VORICONAZOLE [Concomitant]
     Active Substance: VORICONAZOLE
     Route: 048
     Dates: start: 20220723, end: 20220725
  56. VORICONAZOLE [Concomitant]
     Active Substance: VORICONAZOLE
     Route: 042
     Dates: start: 20220722, end: 20220722
  57. VORICONAZOLE [Concomitant]
     Active Substance: VORICONAZOLE
     Dates: start: 20220723, end: 20220723
  58. VORICONAZOLE [Concomitant]
     Active Substance: VORICONAZOLE
     Route: 042
     Dates: start: 20220724, end: 20220724
  59. THYMOPENTIN [Concomitant]
     Active Substance: THYMOPENTIN
     Route: 042
     Dates: start: 20220723, end: 20220725
  60. MEROPENEM [Concomitant]
     Active Substance: MEROPENEM
     Route: 042
     Dates: start: 20220723, end: 20220725
  61. VANCOMYCIN HYDROCHLORIDE [Concomitant]
     Active Substance: VANCOMYCIN HYDROCHLORIDE
     Route: 042
     Dates: start: 20220623, end: 20220725
  62. METOPROLOL TARTRATE [Concomitant]
     Active Substance: METOPROLOL TARTRATE
     Route: 048
     Dates: start: 20220724, end: 20220725
  63. LEVAMLODIPINE BESYLATE [Concomitant]
     Active Substance: LEVAMLODIPINE BESYLATE
     Indication: Hypotension
     Route: 048
     Dates: start: 20220713, end: 20220720
  64. TAMSULOSIN HYDROCHLORIDE [Concomitant]
     Active Substance: TAMSULOSIN HYDROCHLORIDE
     Indication: Prostatomegaly
     Route: 048
     Dates: start: 20220713, end: 20220720
  65. OXYCODONE AND ACETAMINOPHEN [Concomitant]
     Active Substance: ACETAMINOPHEN\OXYCODONE HYDROCHLORIDE
     Indication: Analgesic therapy
     Route: 048
     Dates: start: 20220716, end: 20220718
  66. PROPOFOL [Concomitant]
     Active Substance: PROPOFOL
     Route: 042
     Dates: start: 20220718, end: 20220718
  67. PROPOFOL [Concomitant]
     Active Substance: PROPOFOL
     Route: 042
     Dates: start: 20220718, end: 20220718
  68. PROPOFOL [Concomitant]
     Active Substance: PROPOFOL
     Route: 042
     Dates: start: 20220719, end: 20220719
  69. PROPOFOL [Concomitant]
     Active Substance: PROPOFOL
     Route: 042
     Dates: start: 20220721, end: 20220721
  70. PROPOFOL [Concomitant]
     Active Substance: PROPOFOL
     Route: 042
     Dates: start: 20220722, end: 20220722
  71. PROPOFOL [Concomitant]
     Active Substance: PROPOFOL
     Route: 042
     Dates: start: 20220723, end: 20220723
  72. PROPOFOL [Concomitant]
     Active Substance: PROPOFOL
     Route: 042
     Dates: start: 20220724, end: 20220724
  73. PROPOFOL [Concomitant]
     Active Substance: PROPOFOL
     Route: 042
     Dates: start: 20220725, end: 20220725
  74. SUFENTANIL CITRATE [Concomitant]
     Active Substance: SUFENTANIL CITRATE
     Route: 042
     Dates: start: 20220718, end: 20220718
  75. SUFENTANIL CITRATE [Concomitant]
     Active Substance: SUFENTANIL CITRATE
     Route: 042
     Dates: start: 20220719, end: 20220719
  76. SUFENTANIL CITRATE [Concomitant]
     Active Substance: SUFENTANIL CITRATE
     Route: 042
     Dates: start: 20220721, end: 20220721
  77. SUFENTANIL CITRATE [Concomitant]
     Active Substance: SUFENTANIL CITRATE
     Route: 042
     Dates: start: 20220722, end: 20220722
  78. SUFENTANIL CITRATE [Concomitant]
     Active Substance: SUFENTANIL CITRATE
     Route: 042
     Dates: start: 20220723, end: 20220723
  79. SUFENTANIL CITRATE [Concomitant]
     Active Substance: SUFENTANIL CITRATE
     Route: 042
     Dates: start: 20220725, end: 20220725
  80. SUFENTANIL CITRATE [Concomitant]
     Active Substance: SUFENTANIL CITRATE
     Route: 042
     Dates: start: 20220724, end: 20220724
  81. TETRACAINE HYDROCHLORIDE [Concomitant]
     Active Substance: TETRACAINE HYDROCHLORIDE
     Indication: Local anaesthesia
     Route: 061
     Dates: start: 20220718, end: 20220718
  82. ROCURONIUM BROMIDE [Concomitant]
     Active Substance: ROCURONIUM BROMIDE
     Indication: Sedation
     Route: 042
     Dates: start: 20220718, end: 20220718
  83. ROCURONIUM BROMIDE [Concomitant]
     Active Substance: ROCURONIUM BROMIDE
     Route: 042
     Dates: start: 20220718, end: 20220718
  84. VECURONIUM BROMIDE [Concomitant]
     Active Substance: VECURONIUM BROMIDE
     Indication: Sedation
     Route: 042
     Dates: start: 20220718, end: 20220718
  85. VECURONIUM BROMIDE [Concomitant]
     Active Substance: VECURONIUM BROMIDE
     Route: 042
     Dates: start: 20220718, end: 20220718
  86. VECURONIUM BROMIDE [Concomitant]
     Active Substance: VECURONIUM BROMIDE
     Route: 042
     Dates: start: 20220719, end: 20220719
  87. VECURONIUM BROMIDE [Concomitant]
     Active Substance: VECURONIUM BROMIDE
     Route: 042
     Dates: start: 20220720, end: 20220720
  88. VECURONIUM BROMIDE [Concomitant]
     Active Substance: VECURONIUM BROMIDE
     Route: 042
     Dates: start: 20220722, end: 20220722
  89. VECURONIUM BROMIDE [Concomitant]
     Active Substance: VECURONIUM BROMIDE
     Route: 042
     Dates: start: 20220722, end: 20220722
  90. VECURONIUM BROMIDE [Concomitant]
     Active Substance: VECURONIUM BROMIDE
     Route: 042
     Dates: start: 20220723, end: 20220723
  91. DEXMEDETOMIDINE HYDROCHLORIDE [Concomitant]
     Active Substance: DEXMEDETOMIDINE HYDROCHLORIDE
     Route: 042
     Dates: start: 20220718, end: 20220718
  92. DEXMEDETOMIDINE HYDROCHLORIDE [Concomitant]
     Active Substance: DEXMEDETOMIDINE HYDROCHLORIDE
     Route: 042
     Dates: start: 20220719, end: 20220719
  93. DEXMEDETOMIDINE HYDROCHLORIDE [Concomitant]
     Active Substance: DEXMEDETOMIDINE HYDROCHLORIDE
     Route: 042
     Dates: start: 20220720, end: 20220720
  94. DEXMEDETOMIDINE HYDROCHLORIDE [Concomitant]
     Active Substance: DEXMEDETOMIDINE HYDROCHLORIDE
     Route: 042
     Dates: start: 20220721, end: 20220721
  95. DEXMEDETOMIDINE HYDROCHLORIDE [Concomitant]
     Active Substance: DEXMEDETOMIDINE HYDROCHLORIDE
     Route: 042
     Dates: start: 20220722, end: 20220722
  96. DEXMEDETOMIDINE HYDROCHLORIDE [Concomitant]
     Active Substance: DEXMEDETOMIDINE HYDROCHLORIDE
     Route: 042
     Dates: start: 20220724, end: 20220724
  97. LIDOCAINE HYDROCHLORIDE [Concomitant]
     Active Substance: LIDOCAINE HYDROCHLORIDE
     Indication: Local anaesthesia
     Route: 061
     Dates: start: 20220718, end: 20220718
  98. LIDOCAINE HYDROCHLORIDE [Concomitant]
     Active Substance: LIDOCAINE HYDROCHLORIDE
     Route: 042
     Dates: start: 20220721, end: 20220721
  99. LIDOCAINE HYDROCHLORIDE [Concomitant]
     Active Substance: LIDOCAINE HYDROCHLORIDE
     Route: 042
     Dates: start: 20220722, end: 20220722
  100. LIDOCAINE HYDROCHLORIDE [Concomitant]
     Active Substance: LIDOCAINE HYDROCHLORIDE
     Route: 042
     Dates: start: 20220723, end: 20220723
  101. MIDAZOLAM [Concomitant]
     Active Substance: MIDAZOLAM
     Indication: Sedation
     Route: 042
     Dates: start: 20220718, end: 20220718
  102. MIDAZOLAM [Concomitant]
     Active Substance: MIDAZOLAM
     Route: 042
     Dates: start: 20220719, end: 20220719
  103. NOREPINEPHRINE BITARTRATE [Concomitant]
     Active Substance: NOREPINEPHRINE BITARTRATE
     Route: 042
     Dates: start: 20220718, end: 20220719
  104. NOREPINEPHRINE BITARTRATE [Concomitant]
     Active Substance: NOREPINEPHRINE BITARTRATE
     Route: 042
     Dates: start: 20220719, end: 20220719
  105. NOREPINEPHRINE BITARTRATE [Concomitant]
     Active Substance: NOREPINEPHRINE BITARTRATE
     Route: 042
     Dates: start: 20220722, end: 20220722
  106. NOREPINEPHRINE BITARTRATE [Concomitant]
     Active Substance: NOREPINEPHRINE BITARTRATE
     Route: 042
     Dates: start: 20220723, end: 20220723
  107. NOREPINEPHRINE BITARTRATE [Concomitant]
     Active Substance: NOREPINEPHRINE BITARTRATE
     Route: 042
     Dates: start: 20220725, end: 20220725
  108. NOREPINEPHRINE BITARTRATE [Concomitant]
     Active Substance: NOREPINEPHRINE BITARTRATE
     Route: 042
     Dates: start: 20220720, end: 20220720
  109. POSTERIOR PITUITARY INJECTION [Concomitant]
     Indication: Haemorrhage
     Dosage: DOSE 24 U
     Route: 042
     Dates: start: 20220718, end: 20220718
  110. FUROSEMIDE [Concomitant]
     Active Substance: FUROSEMIDE
     Indication: Polyuria
     Route: 042
     Dates: start: 20220718, end: 20220718
  111. FUROSEMIDE [Concomitant]
     Active Substance: FUROSEMIDE
     Route: 042
     Dates: start: 20220719, end: 20220719
  112. FUROSEMIDE [Concomitant]
     Active Substance: FUROSEMIDE
     Route: 042
     Dates: start: 20220719, end: 20220719
  113. INSULIN HUMAN [Concomitant]
     Active Substance: INSULIN HUMAN
     Dosage: DOSE 80 U
     Route: 042
     Dates: start: 20220719, end: 20220719
  114. INSULIN HUMAN [Concomitant]
     Active Substance: INSULIN HUMAN
     Dosage: 80U
     Route: 042
     Dates: start: 20220723, end: 20220723
  115. INSULIN HUMAN [Concomitant]
     Active Substance: INSULIN HUMAN
     Route: 045
     Dates: start: 20220720, end: 20220720
  116. INSULIN HUMAN [Concomitant]
     Active Substance: INSULIN HUMAN
     Dosage: 80 U
     Route: 042
     Dates: start: 20220720, end: 20220720
  117. INSULIN HUMAN [Concomitant]
     Active Substance: INSULIN HUMAN
     Dosage: 80 U
     Route: 042
     Dates: start: 20220722, end: 20220722
  118. INSULIN HUMAN [Concomitant]
     Active Substance: INSULIN HUMAN
     Dosage: 8 U
     Route: 042
     Dates: start: 20220724, end: 20220724
  119. INSULIN HUMAN [Concomitant]
     Active Substance: INSULIN HUMAN
     Dosage: 80U
     Route: 042
     Dates: start: 20220725, end: 20220725
  120. ELECTROLYTES NOS [Concomitant]
     Active Substance: ELECTROLYTES NOS
     Route: 042
     Dates: start: 20220718, end: 20220718
  121. ELECTROLYTES NOS [Concomitant]
     Active Substance: ELECTROLYTES NOS
     Route: 042
     Dates: start: 20220723, end: 20220723
  122. ELECTROLYTES NOS [Concomitant]
     Active Substance: ELECTROLYTES NOS
     Route: 042
     Dates: start: 20220724, end: 20220724
  123. CALCIUM GLUCONATE [Concomitant]
     Active Substance: CALCIUM GLUCONATE
     Route: 042
     Dates: start: 20220720, end: 20220720
  124. CALCIUM GLUCONATE [Concomitant]
     Active Substance: CALCIUM GLUCONATE
     Route: 042
     Dates: start: 20220722, end: 20220722
  125. ROCURONIUM BROMIDE [Concomitant]
     Active Substance: ROCURONIUM BROMIDE
     Indication: Muscle relaxant therapy
     Route: 045
     Dates: start: 20220721, end: 20220721
  126. ESMOLOL HYDROCHLORIDE [Concomitant]
     Active Substance: ESMOLOL HYDROCHLORIDE
     Route: 042
     Dates: start: 20220722, end: 20220722
  127. ESMOLOL HYDROCHLORIDE [Concomitant]
     Active Substance: ESMOLOL HYDROCHLORIDE
     Route: 042
     Dates: start: 20220723, end: 20220723
  128. POVIDONE-IODINE [Concomitant]
     Active Substance: POVIDONE-IODINE
     Route: 042
     Dates: start: 20220723, end: 20220723

REACTIONS (4)
  - Respiratory failure [Fatal]
  - Immune-mediated lung disease [Not Recovered/Not Resolved]
  - Post procedural pneumonia [Not Recovered/Not Resolved]
  - Pneumonia [Not Recovered/Not Resolved]

NARRATIVE: CASE EVENT DATE: 20220608
